FAERS Safety Report 5124537-5 (Version None)
Quarter: 2006Q3

REPORT INFORMATION
  Report Type: 
  Country: None (occurrence: None)
  Receive Date: 20060821
  Receipt Date: 20060718
  Transmission Date: 20061208
  Serious: No
  Sender: FDA-Public Use
  Company Number: TPA2006A01147

PATIENT
  Age: 43 Year
  Sex: Female
  Weight: 56.6996 kg

DRUGS (10)
  1. ROZEREM [Suspect]
     Indication: INSOMNIA
     Dosage: 8 MG, HS, PER ORAL
     Route: 048
     Dates: start: 20060717
  2. BUSPAR [Concomitant]
  3. ATIVAN [Concomitant]
  4. TENORMIN [Concomitant]
  5. BENTYL [Concomitant]
  6. PROTONIX [Concomitant]
  7. FLONASE [Concomitant]
  8. MUCINEX [Concomitant]
  9. LOESTRIN 1.5/30 [Concomitant]
  10. ZANTAC [Concomitant]

REACTIONS (1)
  - MIDDLE INSOMNIA [None]
